FAERS Safety Report 6956675-6 (Version None)
Quarter: 2010Q3

REPORT INFORMATION
  Report Type: 
  Country: None (occurrence: None)
  Receive Date: 20100830
  Receipt Date: 20090812
  Transmission Date: 20110219
  Serious: No
  Sender: FDA-Public Use
  Company Number: US-BAUSCH-2009BL004064

PATIENT
  Age: 79 Year
  Sex: Male
  Weight: 74 kg

DRUGS (2)
  1. NEOMYCIN + POLYMYXIN B SULFATES + DEXAMETHASONE [Suspect]
     Indication: EYE INFECTION
     Route: 047
     Dates: start: 20090811, end: 20090811
  2. SYSTANE [Concomitant]

REACTIONS (1)
  - VISION BLURRED [None]
